FAERS Safety Report 8249378-1 (Version None)
Quarter: 2012Q1

REPORT INFORMATION
  Report Type: 
  Country: None (occurrence: None)
  Receive Date: 20120327
  Receipt Date: 20120320
  Transmission Date: 20120608
  Serious: Yes (Congenital Anomaly)
  Sender: FDA-Public Use
  Company Number: 2012SP015600

PATIENT

DRUGS (1)
  1. NEXPLANON [Suspect]
     Indication: MATERNAL EXPOSURE DURING PREGNANCY
     Dosage: TRPL
     Route: 064

REACTIONS (2)
  - CONGENITAL RENAL DISORDER [None]
  - MATERNAL DRUGS AFFECTING FOETUS [None]
